FAERS Safety Report 8399766-8 (Version None)
Quarter: 2012Q2

REPORT INFORMATION
  Report Type: 
  Country: None (occurrence: None)
  Receive Date: 20120531
  Receipt Date: 20120525
  Transmission Date: 20120825
  Serious: Yes (Other)
  Sender: FDA-Public Use
  Company Number: US-ALLERGAN-1203130US

PATIENT
  Age: 65 Year
  Sex: Female

DRUGS (7)
  1. WELLBUTRIN [Concomitant]
     Indication: DEPRESSION
  2. LISINOPRIL [Concomitant]
     Indication: HYPERTENSION
  3. SIMVASTATIN [Concomitant]
     Indication: HYPERCHOLESTEROLAEMIA
  4. GLYBURIDE [Concomitant]
     Indication: DIABETES MELLITUS
  5. LASIX [Concomitant]
     Indication: HYPERTENSION
  6. CELEXA [Concomitant]
     Indication: DEPRESSION
  7. OZURDEX [Suspect]
     Indication: MACULAR OEDEMA
     Dosage: 0.7 MG, SINGLE
     Route: 031
     Dates: start: 20120213

REACTIONS (3)
  - CORNEAL OEDEMA [None]
  - DEVICE DISLOCATION [None]
  - VISUAL ACUITY REDUCED [None]
